FAERS Safety Report 18026954 (Version 1)
Quarter: 2020Q3

REPORT INFORMATION
  Report Type: Spontaneous
  Country: US (occurrence: US)
  Receive Date: 20200715
  Receipt Date: 20200715
  Transmission Date: 20201103
  Serious: Yes (Hospitalization, Disabling, Other)
  Sender: FDA-Public Use
  Company Number: US-PURDUE-USA-2020-0155660

PATIENT
  Age: 62 Year
  Sex: Male

DRUGS (4)
  1. OXYIR [Suspect]
     Active Substance: OXYCODONE HYDROCHLORIDE
     Indication: PRODUCT USED FOR UNKNOWN INDICATION
     Dosage: UNKNOWN
     Route: 065
  2. BACLOFEN. [Suspect]
     Active Substance: BACLOFEN
     Indication: PAIN
     Dosage: UNKNOWN
     Route: 062
  3. FENTANYL. [Suspect]
     Active Substance: FENTANYL
     Indication: PRODUCT USED FOR UNKNOWN INDICATION
     Dosage: UNKNOWN
     Route: 065
  4. OXYCONTIN [Suspect]
     Active Substance: OXYCODONE HYDROCHLORIDE
     Indication: PRODUCT USED FOR UNKNOWN INDICATION
     Dosage: UNKNOWN
     Route: 048

REACTIONS (21)
  - Overdose [Unknown]
  - Drug abuse [Unknown]
  - Vomiting [Unknown]
  - Blood pressure diastolic increased [Unknown]
  - Heart rate decreased [Unknown]
  - Drug dependence [Unknown]
  - Encephalopathy [Unknown]
  - Disability [Unknown]
  - Spinal osteoarthritis [Unknown]
  - Suicide attempt [Unknown]
  - Sinus bradycardia [Unknown]
  - Neutrophil count increased [Unknown]
  - Lymphocyte count decreased [Unknown]
  - Alanine aminotransferase decreased [Unknown]
  - Acute respiratory failure [Unknown]
  - Respiratory distress [Unknown]
  - Hypokalaemia [Unknown]
  - Depressed level of consciousness [Unknown]
  - Prostatomegaly [Unknown]
  - Blood pressure systolic increased [Unknown]
  - Aspartate aminotransferase decreased [Unknown]

NARRATIVE: CASE EVENT DATE: 1995
